FAERS Safety Report 6337561-1 (Version None)
Quarter: 2009Q3

REPORT INFORMATION
  Report Type: 
  Country: None (occurrence: None)
  Receive Date: 20090902
  Receipt Date: 20090824
  Transmission Date: 20100115
  Serious: Yes (Other)
  Sender: FDA-Public Use
  Company Number: JP-JNJFOC-20090809572

PATIENT
  Sex: Female

DRUGS (3)
  1. LEVOFLOXACIN [Suspect]
     Indication: ENTERITIS
     Route: 048
  2. MUCOSTA [Suspect]
     Indication: ENTERITIS
     Route: 048
  3. BIOFERMIN [Suspect]
     Indication: ENTERITIS
     Route: 048

REACTIONS (4)
  - BRONCHOSPASM [None]
  - DYSPHONIA [None]
  - GENERALISED ERYTHEMA [None]
  - SENSORY DISTURBANCE [None]
